FAERS Safety Report 9480795 (Version 1)
Quarter: 2013Q3

REPORT INFORMATION
  Report Type: Spontaneous
  Country: US (occurrence: US)
  Receive Date: 20130828
  Receipt Date: 20130828
  Transmission Date: 20140515
  Serious: Yes (Hospitalization, Other)
  Sender: FDA-Public Use
  Company Number: US-AMGEN-KDL118276

PATIENT
  Age: 37 Year
  Sex: Female

DRUGS (5)
  1. ENBREL [Suspect]
     Indication: RHEUMATOID ARTHRITIS
     Dosage: 25 MG, 2 TIMES/WK
     Route: 058
     Dates: start: 1999, end: 20041220
  2. METHOTREXATE [Suspect]
     Dosage: UNK UNK, UNK
     Dates: start: 200411
  3. REMICADE [Concomitant]
     Dosage: UNK UNK, UNK
     Dates: start: 20050111, end: 20050126
  4. LEFLUNOMIDE [Concomitant]
     Dosage: UNK UNK, UNK
     Dates: end: 2004
  5. CELECOXIB [Concomitant]
     Dosage: UNK UNK, UNK
     Dates: end: 2004

REACTIONS (3)
  - Ovarian cancer [Unknown]
  - Diverticulitis [Unknown]
  - Drug ineffective [Unknown]
